FAERS Safety Report 16090416 (Version 2)
Quarter: 2019Q3

REPORT INFORMATION
  Report Type: Report from Study
  Country: None (occurrence: IL)
  Receive Date: 20190319
  Receipt Date: 20190708
  Transmission Date: 20191004
  Serious: Yes (Hospitalization, Disabling, Other)
  Sender: FDA-Public Use
  Company Number: IL-ABBVIE-19K-082-2705463-00

PATIENT
  Sex: Female

DRUGS (1)
  1. HUMIRA [Suspect]
     Active Substance: ADALIMUMAB
     Indication: PSORIATIC ARTHROPATHY
     Route: 058
     Dates: start: 20181206, end: 20190321

REACTIONS (7)
  - Disability [Unknown]
  - Thyroid cyst [Unknown]
  - Femur fracture [Unknown]
  - Weight decreased [Unknown]
  - Pancreatic cyst [Unknown]
  - Arrhythmia [Recovering/Resolving]
  - Hypertension [Recovering/Resolving]

NARRATIVE: CASE EVENT DATE: 201812
